FAERS Safety Report 6583241-7 (Version None)
Quarter: 2010Q1

REPORT INFORMATION
  Report Type: 
  Country: None (occurrence: None)
  Receive Date: 20100216
  Receipt Date: 20100204
  Transmission Date: 20100710
  Serious: Yes (Other)
  Sender: FDA-Public Use
  Company Number: GB-B.I. PHARMACEUTICALS,INC./RIDGEFIELD-2010-UK-00039UK

PATIENT
  Sex: Female

DRUGS (1)
  1. CATAPRES [Suspect]

REACTIONS (2)
  - ANGINA PECTORIS [None]
  - WITHDRAWAL SYNDROME [None]
